FAERS Safety Report 15081910 (Version 1)
Quarter: 2018Q2

REPORT INFORMATION
  Report Type: Spontaneous
  Country: US (occurrence: US)
  Receive Date: 20180607
  Receipt Date: 20180607
  Transmission Date: 20180711
  Serious: No
  Sender: FDA-Public Use
  Company Number: None

PATIENT
  Age: 73 Year
  Sex: Female
  Weight: 81 kg

DRUGS (13)
  1. EZETIMIBE. [Suspect]
     Active Substance: EZETIMIBE
     Indication: BLOOD CHOLESTEROL INCREASED
     Dosage: ?          QUANTITY:90 CAPSULE(S);?
     Route: 048
     Dates: start: 20180503, end: 20180515
  2. FLUTICASONE PROPINATE [Concomitant]
     Active Substance: FLUTICASONE PROPIONATE
  3. COENZYME Q10 [Concomitant]
     Active Substance: UBIDECARENONE
  4. ASPIRIN. [Concomitant]
     Active Substance: ASPIRIN
  5. CARVEDILOL. [Concomitant]
     Active Substance: CARVEDILOL
  6. HYDROCHLOROTHIAZIDE. [Concomitant]
     Active Substance: HYDROCHLOROTHIAZIDE
  7. CETIRIZINE HYDROCHLORIDE. [Concomitant]
     Active Substance: CETIRIZINE HYDROCHLORIDE
  8. LOSARTIN [Concomitant]
     Active Substance: LOSARTAN
  9. CLOPIDOGREL [Concomitant]
     Active Substance: CLOPIDOGREL BISULFATE
  10. BIOTIN [Concomitant]
     Active Substance: BIOTIN
  11. OMEGA Q PLUS [Concomitant]
  12. VITAMIN B12 [Concomitant]
     Active Substance: CYANOCOBALAMIN
  13. ACETAMINAPHEN [Concomitant]

REACTIONS (5)
  - Flatulence [None]
  - Syncope [None]
  - Dizziness [None]
  - Sleep disorder [None]
  - Middle insomnia [None]

NARRATIVE: CASE EVENT DATE: 20180512
